FAERS Safety Report 22592891 (Version 1)
Quarter: 2023Q2

REPORT INFORMATION
  Report Type: Report from Study
  Country: US (occurrence: US)
  Receive Date: 20230613
  Receipt Date: 20230613
  Transmission Date: 20230721
  Serious: Yes (Hospitalization, Other)
  Sender: FDA-Public Use
  Company Number: US-ABBVIE-5286485

PATIENT
  Sex: Female

DRUGS (1)
  1. SKYRIZI [Suspect]
     Active Substance: RISANKIZUMAB-RZAA
     Indication: Psoriasis
     Dosage: WEEK ZERO?ONE IN ONCE FRQEUENCY
     Route: 058
     Dates: start: 2023, end: 2023

REACTIONS (1)
  - Gastric operation [Unknown]

NARRATIVE: CASE EVENT DATE: 20230101
